FAERS Safety Report 5768268-7 (Version None)
Quarter: 2008Q2

REPORT INFORMATION
  Report Type: 
  Country: None (occurrence: None)
  Receive Date: 20080612
  Receipt Date: 20080506
  Transmission Date: 20081010
  Serious: No
  Sender: FDA-Public Use
  Company Number: PR-ABBOTT-08P-131-0450726-00

PATIENT
  Sex: Female
  Weight: 55.842 kg

DRUGS (4)
  1. HUMIRA [Suspect]
     Indication: JUVENILE ARTHRITIS
     Dosage: 20 MG OF 40 MG SYRINGE EVERY OTHER WEEK
     Route: 058
     Dates: start: 20080418
  2. METHOTREXATE [Concomitant]
     Indication: JUVENILE ARTHRITIS
     Dosage: 1 CC WEEKLY
     Route: 050
     Dates: start: 20060101
  3. FOLIC ACID [Concomitant]
     Indication: JUVENILE ARTHRITIS
     Route: 048
     Dates: start: 20060101
  4. PREFOLD [Concomitant]
     Indication: UVEITIS
     Route: 061

REACTIONS (1)
  - UNDERDOSE [None]
